FAERS Safety Report 8367912-8 (Version None)
Quarter: 2012Q2

REPORT INFORMATION
  Report Type: 
  Country: None (occurrence: None)
  Receive Date: 20120517
  Receipt Date: 20120509
  Transmission Date: 20120825
  Serious: Yes (Death)
  Sender: FDA-Public Use
  Company Number: US-FRI-1000029692

PATIENT
  Sex: Male
  Weight: 101.6 kg

DRUGS (7)
  1. LISINOPRIL [Concomitant]
  2. HYDROCHLOROTHIAZIDE [Concomitant]
  3. METFORMIN HCL [Concomitant]
  4. VIIBRYD [Suspect]
     Indication: DEPRESSION
     Dosage: 10 MG
     Dates: start: 20120306, end: 20120313
  5. BYSTOLIC [Concomitant]
  6. CIALIS [Concomitant]
  7. ATIVAN [Concomitant]

REACTIONS (1)
  - HEPATIC FAILURE [None]
